FAERS Safety Report 18702613 (Version 1)
Quarter: 2021Q1

REPORT INFORMATION
  Report Type: Spontaneous
  Country: US (occurrence: US)
  Receive Date: 20210105
  Receipt Date: 20210105
  Transmission Date: 20210419
  Serious: No
  Sender: FDA-Public Use
  Company Number: US-BAYER-2021-000037

PATIENT
  Age: 64 Year
  Sex: Male

DRUGS (3)
  1. ALEVE [Suspect]
     Active Substance: NAPROXEN SODIUM
  2. IMBRUVICA [Concomitant]
     Active Substance: IBRUTINIB
     Dosage: 420 MG
     Route: 048
     Dates: start: 20151009
  3. IMBRUVICA [Concomitant]
     Active Substance: IBRUTINIB
     Dosage: 420 MG
     Dates: start: 20180425

REACTIONS (1)
  - Ocular hyperaemia [Unknown]
